APPROVED DRUG PRODUCT: CREXONT
Active Ingredient: CARBIDOPA; LEVODOPA
Strength: 70MG;280MG
Dosage Form/Route: CAPSULE, EXTENDED RELEASE;ORAL
Application: N217186 | Product #003
Applicant: IMPAX LABORATORIES LLC
Approved: Aug 7, 2024 | RLD: Yes | RS: No | Type: RX

PATENTS:
Patent 12303482 | Expires: Dec 21, 2041
Patent 12303482 | Expires: Dec 21, 2041
Patent 12303482 | Expires: Dec 21, 2041
Patent 12303482 | Expires: Dec 21, 2041
Patent 12295931 | Expires: Dec 21, 2041
Patent 12295931 | Expires: Dec 21, 2041
Patent 12295931 | Expires: Dec 21, 2041
Patent 12295931 | Expires: Dec 21, 2041
Patent 12303481 | Expires: Dec 21, 2041
Patent 12303481 | Expires: Dec 21, 2041
Patent 12303481 | Expires: Dec 21, 2041
Patent 12303481 | Expires: Dec 21, 2041
Patent 11986449 | Expires: Dec 21, 2041
Patent 11666538 | Expires: Oct 7, 2034
Patent 10987313 | Expires: Oct 7, 2034
Patent 10973769 | Expires: Oct 7, 2034
Patent 10688058 | Expires: Oct 7, 2034
Patent 10292935 | Expires: Oct 7, 2034
Patent 10098845 | Expires: Oct 7, 2034
Patent 12201596 | Expires: Dec 21, 2041
Patent 12201596 | Expires: Dec 21, 2041
Patent 12201596 | Expires: Dec 21, 2041
Patent 12178919 | Expires: Oct 7, 2034
Patent 12109185 | Expires: Dec 21, 2041
Patent 12109185 | Expires: Dec 21, 2041
Patent 12109185 | Expires: Dec 21, 2041
Patent 12109185 | Expires: Dec 21, 2041
Patent 12458616 | Expires: Dec 21, 2041
Patent 12458616 | Expires: Dec 21, 2041
Patent 12458616 | Expires: Dec 21, 2041
Patent 12458616 | Expires: Dec 21, 2041
Patent 12453710 | Expires: Dec 21, 2041
Patent 12263148 | Expires: Dec 21, 2041
Patent 12263148 | Expires: Dec 21, 2041
Patent 12263148 | Expires: Dec 21, 2041
Patent 12263148 | Expires: Dec 21, 2041
Patent 12263149 | Expires: Dec 21, 2041
Patent 12263149 | Expires: Dec 21, 2041
Patent 12263149 | Expires: Dec 21, 2041
Patent 12263149 | Expires: Dec 21, 2041
Patent 12453710 | Expires: Dec 21, 2041
Patent 12453710 | Expires: Dec 21, 2041
Patent 12453710 | Expires: Dec 21, 2041
Patent 12447139 | Expires: Dec 21, 2041
Patent 12447139 | Expires: Dec 21, 2041
Patent 12447139 | Expires: Dec 21, 2041
Patent 12447139 | Expires: Dec 21, 2041
Patent 12194150 | Expires: Dec 21, 2041
Patent 12370163 | Expires: Dec 21, 2041
Patent 12370163 | Expires: Dec 21, 2041
Patent 12370163 | Expires: Dec 21, 2041
Patent 12370163 | Expires: Dec 21, 2041
Patent 12128141 | Expires: Oct 7, 2034
Patent 11622941 | Expires: Oct 7, 2034
Patent 12274793 | Expires: Oct 7, 2034
Patent 12064521 | Expires: Oct 7, 2034
Patent 12178918 | Expires: Oct 7, 2034
Patent 12303605 | Expires: Oct 7, 2034
Patent 12491164 | Expires: Oct 7, 2034
Patent 12403099 | Expires: Oct 7, 2034
Patent 11357733 | Expires: Oct 7, 2034

EXCLUSIVITY:
Code: NP | Date: Aug 7, 2027